FAERS Safety Report 5266549-7 (Version None)
Quarter: 2007Q1

REPORT INFORMATION
  Report Type: 
  Country: None (occurrence: None)
  Receive Date: 20070315
  Receipt Date: 20070308
  Transmission Date: 20070707
  Serious: Yes (Hospitalization)
  Sender: FDA-Public Use
  Company Number: US-SHR-US-2007-006949

PATIENT
  Age: 48 Year
  Sex: Female
  Weight: 72 kg

DRUGS (8)
  1. BETASERON [Suspect]
     Dosage: 8 MIU, EVERY 2D
     Route: 058
     Dates: start: 20030101
  2. ALL OTHER THERAPEUTIC PRODUCTS [Concomitant]
     Dates: start: 20070219
  3. ATENOLOL [Concomitant]
     Dosage: 50 MG/D, UNK
  4. LISINOPRIL [Concomitant]
     Dosage: 10 MG/D, UNK
  5. PLAVIX [Concomitant]
     Dosage: DAILY
  6. SIMVASTATIN [Concomitant]
     Dosage: DAILY
  7. OMEPRAZOLE [Concomitant]
     Dosage: DAILY
  8. OXYGEN [Concomitant]
     Route: 055
     Dates: start: 20070219

REACTIONS (2)
  - MYOCARDIAL INFARCTION [None]
  - PNEUMONIA BACTERIAL [None]
